FAERS Safety Report 11391819 (Version 2)
Quarter: 2015Q3

REPORT INFORMATION
  Report Type: Spontaneous
  Country: US (occurrence: None)
  Receive Date: 20150814
  Receipt Date: 20150824
  Transmission Date: 20151125
  Serious: Yes (Other)
  Sender: FDA-Public Use
  Company Number: 2015SMT00241

PATIENT
  Age: 54 Year
  Sex: Female
  Weight: 52.2 kg

DRUGS (8)
  1. NOVOLOG INSULIN PUMP (INSULIN ASPART RECOMBINANT) [Concomitant]
  2. REGRANEX [Suspect]
     Active Substance: BECAPLERMIN
     Indication: WOUND
     Dosage: 2X/DAY, TOPICAL
     Route: 061
     Dates: start: 20150716, end: 20150731
  3. ZOLOFT [Concomitant]
     Active Substance: SERTRALINE HYDROCHLORIDE
  4. CRESTOR [Concomitant]
     Active Substance: ROSUVASTATIN CALCIUM
  5. TRAVATAN Z (TRAVOPROST) [Concomitant]
  6. PRILOSEC (OMEPRAZOLE) [Concomitant]
     Active Substance: OMEPRAZOLE MAGNESIUM
  7. PRAMIPEXOLE (PRAMIPEXOLE DIHYDROCHLORIDE) [Concomitant]
  8. ASPIRIN (ACETYLSALICYLIC ACID) [Concomitant]
     Active Substance: ASPIRIN

REACTIONS (4)
  - Inappropriate schedule of drug administration [None]
  - Wound infection staphylococcal [None]
  - Drug ineffective [None]
  - Impaired healing [None]

NARRATIVE: CASE EVENT DATE: 20150716
